FAERS Safety Report 17887453 (Version 1)
Quarter: 2020Q2

REPORT INFORMATION
  Report Type: Spontaneous
  Country: CA (occurrence: CA)
  Receive Date: 20200611
  Receipt Date: 20200611
  Transmission Date: 20200714
  Serious: Yes (Other)
  Sender: FDA-Public Use
  Company Number: CA-ABBVIE-20K-028-3437215-00

PATIENT
  Sex: Female

DRUGS (5)
  1. SULFASALAZINE. [Suspect]
     Active Substance: SULFASALAZINE
     Indication: PRODUCT USED FOR UNKNOWN INDICATION
     Route: 065
  2. METHOTREXATE. [Suspect]
     Active Substance: METHOTREXATE
     Indication: PRODUCT USED FOR UNKNOWN INDICATION
     Route: 065
     Dates: start: 2018
  3. HUMIRA [Suspect]
     Active Substance: ADALIMUMAB
     Indication: CROHN^S DISEASE
     Route: 058
  4. IMODIUM [Concomitant]
     Active Substance: LOPERAMIDE HYDROCHLORIDE
     Indication: PRODUCT USED FOR UNKNOWN INDICATION
     Route: 065
  5. CLONAZEPAM. [Concomitant]
     Active Substance: CLONAZEPAM
     Indication: PRODUCT USED FOR UNKNOWN INDICATION
     Route: 065

REACTIONS (42)
  - Repetitive strain injury [Unknown]
  - Joint space narrowing [Unknown]
  - Epicondylitis [Unknown]
  - Bone hypertrophy [Unknown]
  - Amputation [Unknown]
  - Tenderness [Unknown]
  - Acquired claw toe [Unknown]
  - Musculoskeletal discomfort [Unknown]
  - Arthralgia [Unknown]
  - Stress [Unknown]
  - Gastrointestinal disorder [Unknown]
  - Drug ineffective [Unknown]
  - Fatigue [Unknown]
  - Fibromyalgia [Unknown]
  - Mouth ulceration [Unknown]
  - Back pain [Unknown]
  - Pain [Recovered/Resolved]
  - Swelling [Unknown]
  - Bone pain [Unknown]
  - Diarrhoea [Recovering/Resolving]
  - Congenital knee deformity [Unknown]
  - Varicose vein [Unknown]
  - C-reactive protein increased [Unknown]
  - Pain in extremity [Unknown]
  - Sacroiliitis [Unknown]
  - Pain [Unknown]
  - Insomnia [Unknown]
  - Large intestine polyp [Unknown]
  - Peripheral pulse decreased [Unknown]
  - Foot deformity [Unknown]
  - Osteoarthritis [Unknown]
  - Disuse syndrome [Unknown]
  - Bursitis [Unknown]
  - Drug hypersensitivity [Unknown]
  - Intervertebral disc space narrowing [Unknown]
  - Abdominal discomfort [Unknown]
  - Anxiety [Unknown]
  - Depression [Unknown]
  - Dermatitis [Unknown]
  - Nausea [Unknown]
  - Limb discomfort [Unknown]
  - Poor quality sleep [Unknown]

NARRATIVE: CASE EVENT DATE: 2018
